FAERS Safety Report 4425684-3 (Version None)
Quarter: 2004Q3

REPORT INFORMATION
  Report Type: 
  Country: None (occurrence: None)
  Receive Date: 20040716
  Receipt Date: 20040209
  Transmission Date: 20050211
  Serious: Yes (Other)
  Sender: FDA-Public Use
  Company Number: 203002

PATIENT
  Age: 56 Year
  Sex: Male
  Weight: 104.3 kg

DRUGS (1)
  1. TNKASE [Suspect]
     Indication: MYOCARDIAL INFARCTION
     Dosage: SINGLE
     Dates: start: 20031012, end: 20031012

REACTIONS (1)
  - DRUG INEFFECTIVE [None]
